FAERS Safety Report 5464287-9 (Version None)
Quarter: 2007Q3

REPORT INFORMATION
  Report Type: 
  Country: None (occurrence: None)
  Receive Date: 20070921
  Receipt Date: 20070919
  Transmission Date: 20080115
  Serious: Yes (Hospitalization)
  Sender: FDA-Public Use
  Company Number: B0486134A

PATIENT
  Age: 73 Year
  Sex: Female

DRUGS (17)
  1. VALTREX [Suspect]
     Indication: GENITAL HERPES
     Route: 048
     Dates: start: 20070702, end: 20070706
  2. ASPARA K [Concomitant]
     Dosage: 600MG PER DAY
     Route: 048
  3. NITOROL R [Concomitant]
     Indication: ANGINA PECTORIS
     Dosage: 40MG PER DAY
     Route: 048
  4. PRAVASTATIN [Concomitant]
     Dosage: 10MG PER DAY
     Route: 048
  5. ALFAROL [Concomitant]
     Indication: OSTEOPOROSIS
     Dosage: .25MCG PER DAY
     Route: 048
     Dates: end: 20070723
  6. IMURAN [Concomitant]
     Indication: SYSTEMIC LUPUS ERYTHEMATOSUS
     Dosage: 50MG PER DAY
     Route: 048
     Dates: end: 20070723
  7. LOSARTAN POTASSIUM AND HYDROCHLOROTHIAZIDE [Concomitant]
     Indication: HYPOTENSION
     Route: 048
     Dates: end: 20070723
  8. HALCION [Concomitant]
     Indication: INSOMNIA
     Dosage: .25MG PER DAY
     Route: 048
  9. PERSANTIN [Concomitant]
     Indication: ANGINA PECTORIS
     Dosage: 75MG PER DAY
     Route: 048
  10. TRYPTANOL [Concomitant]
     Indication: DEPRESSION
     Dosage: 30MG PER DAY
     Route: 048
  11. MAGNESIUM OXIDE [Concomitant]
     Indication: GASTRITIS
     Dosage: 1.5G PER DAY
     Route: 048
  12. BIOFERMIN [Concomitant]
     Indication: CONSTIPATION
     Dosage: 3G PER DAY
     Route: 048
  13. ADONA (AC-17) [Concomitant]
     Dosage: 90MG PER DAY
     Route: 048
  14. VASOLAN [Concomitant]
     Indication: ANGINA PECTORIS
     Dosage: 120MG PER DAY
     Route: 048
  15. ALLOPURINOL [Concomitant]
     Dosage: 200MG PER DAY
     Route: 048
  16. ADALAT [Concomitant]
     Indication: HYPERTENSION
     Dosage: 20MG PER DAY
     Route: 048
  17. PREDONINE [Concomitant]
     Indication: SYSTEMIC LUPUS ERYTHEMATOSUS

REACTIONS (3)
  - ANAEMIA [None]
  - MALAISE [None]
  - PANCYTOPENIA [None]
